FAERS Safety Report 20021323 (Version 2)
Quarter: 2021Q4

REPORT INFORMATION
  Report Type: Spontaneous
  Country: US (occurrence: US)
  Receive Date: 20211101
  Receipt Date: 20211121
  Transmission Date: 20220303
  Serious: No
  Sender: FDA-Public Use
  Company Number: US-009507513-2110USA006476

PATIENT
  Age: 22 Year
  Sex: Female

DRUGS (3)
  1. CANCIDAS [Suspect]
     Active Substance: CASPOFUNGIN ACETATE
     Indication: Disseminated mucormycosis
     Dosage: FOR TWO WEEKS
  2. AMPHOTERICIN B [Concomitant]
     Active Substance: AMPHOTERICIN B
     Indication: Disseminated mucormycosis
     Dosage: HIGH-DOSE
  3. DEFERASIROX [Concomitant]
     Active Substance: DEFERASIROX
     Indication: Disseminated mucormycosis
     Dosage: FOR TWO WEEKS

REACTIONS (1)
  - Drug effective for unapproved indication [Unknown]
